FAERS Safety Report 20077673 (Version 1)
Quarter: 2021Q4

REPORT INFORMATION
  Report Type: Spontaneous
  Country: FR (occurrence: FR)
  Receive Date: 20211116
  Receipt Date: 20211116
  Transmission Date: 20220303
  Serious: Yes (Congenital Anomaly, Other)
  Sender: FDA-Public Use
  Company Number: FR-ABBVIE-21K-056-4160373-00

PATIENT
  Sex: Male

DRUGS (5)
  1. VALPROATE SODIUM [Suspect]
     Active Substance: VALPROATE SODIUM
     Indication: Maternal exposure timing unspecified
     Route: 064
  2. VALPROATE SODIUM [Suspect]
     Active Substance: VALPROATE SODIUM
     Route: 064
  3. VALPROATE SODIUM [Suspect]
     Active Substance: VALPROATE SODIUM
     Route: 064
  4. FOLIC ACID [Concomitant]
     Active Substance: FOLIC ACID
     Indication: Maternal exposure timing unspecified
     Route: 064
  5. ALEPSAL [Concomitant]
     Indication: Maternal exposure timing unspecified
     Route: 064

REACTIONS (46)
  - Polyhydramnios [Unknown]
  - Oesophageal atresia [Unknown]
  - Foetal distress syndrome [Unknown]
  - Premature baby [Unknown]
  - Hypotonia [Unknown]
  - Respiratory distress [Unknown]
  - Tooth avulsion [Unknown]
  - Congenital hand malformation [Unknown]
  - Congenital foot malformation [Unknown]
  - Ligament laxity [Unknown]
  - Insomnia [Unknown]
  - Constipation [Recovered/Resolved]
  - Muscle atrophy [Unknown]
  - Ligament sprain [Unknown]
  - Musculoskeletal stiffness [Unknown]
  - Strabismus [Unknown]
  - Eating disorder [Unknown]
  - Axonal neuropathy [Unknown]
  - Self-injurious ideation [Unknown]
  - Enuresis [Unknown]
  - Dysmorphism [Unknown]
  - Plagiocephaly [Unknown]
  - Ligament sprain [Unknown]
  - Cyanosis [Unknown]
  - Hypoventilation [Unknown]
  - Alveolar lung disease [Unknown]
  - Gait apraxia [Unknown]
  - Hyperacusis [Unknown]
  - Hypokinesia [Unknown]
  - Congenital eye disorder [Unknown]
  - Congenital hand malformation [Unknown]
  - Congenital eyelid malformation [Unknown]
  - Ear malformation [Unknown]
  - Palate injury [Unknown]
  - Bradycardia foetal [Unknown]
  - Autism spectrum disorder [Unknown]
  - Speech disorder developmental [Unknown]
  - Aggression [Unknown]
  - Behaviour disorder [Unknown]
  - Reading disorder [Unknown]
  - Dysgraphia [Unknown]
  - Psychomotor hyperactivity [Unknown]
  - Developmental delay [Unknown]
  - Anxiety [Unknown]
  - Intellectual disability [Unknown]
  - Foetal exposure during pregnancy [Unknown]

NARRATIVE: CASE EVENT DATE: 20061001
